FAERS Safety Report 20168889 (Version 1)
Quarter: 2021Q4

REPORT INFORMATION
  Report Type: Spontaneous
  Country: US (occurrence: US)
  Receive Date: 20211210
  Receipt Date: 20211210
  Transmission Date: 20220303
  Serious: Yes (Death, Other)
  Sender: FDA-Public Use
  Company Number: US-AMGEN-USASP2021192633

PATIENT
  Age: 53 Year
  Sex: Female

DRUGS (2)
  1. INFLIXIMAB [Suspect]
     Active Substance: INFLIXIMAB
     Indication: Colitis
     Dosage: UNK
     Route: 065
  2. INFLIXIMAB [Suspect]
     Active Substance: INFLIXIMAB
     Indication: Off label use

REACTIONS (8)
  - Death [Fatal]
  - Oesophageal ulcer [Recovered/Resolved]
  - Pneumothorax [Unknown]
  - Oesophageal perforation [Unknown]
  - Septic shock [Unknown]
  - Oesophageal candidiasis [Unknown]
  - Off label use [Unknown]
  - Fungal test positive [Unknown]
